FAERS Safety Report 14652649 (Version 1)
Quarter: 2018Q1

REPORT INFORMATION
  Report Type: Spontaneous
  Country: US (occurrence: US)
  Receive Date: 20180319
  Receipt Date: 20180319
  Transmission Date: 20180509
  Serious: Yes (Other)
  Sender: FDA-Public Use
  Company Number: US-ACCORD-064377

PATIENT
  Age: 18 Year
  Sex: Male

DRUGS (3)
  1. AMLODIPINE [Suspect]
     Active Substance: AMLODIPINE BESYLATE
     Dosage: INGESTED MULTIPLE PILLS?STRENGTH: 5 MG
     Route: 048
  2. METFORMIN [Suspect]
     Active Substance: METFORMIN HYDROCHLORIDE
     Dosage: INGESTED MULTIPLE PILLS,?STRENGTH: 500 MG
     Route: 048
  3. HYDROCHLOROTHIAZIDE/LISINOPRIL [Suspect]
     Active Substance: HYDROCHLOROTHIAZIDE\LISINOPRIL
     Dosage: INGESTED MULTIPLE PILLS, WHICH WERE HALF BOTTLE FULL AS PER FAMILY
     Route: 048

REACTIONS (10)
  - Toxicity to various agents [Unknown]
  - Vomiting [Recovered/Resolved]
  - Accidental overdose [None]
  - Lactic acidosis [Unknown]
  - Overdose [Unknown]
  - Hypotension [Recovered/Resolved]
  - Sinus tachycardia [Recovered/Resolved with Sequelae]
  - Renal failure [Unknown]
  - Accidental exposure to product [Unknown]
  - Prescription drug used without a prescription [None]
